FAERS Safety Report 5286903-7 (Version None)
Quarter: 2007Q1

REPORT INFORMATION
  Report Type: 
  Country: None (occurrence: None)
  Receive Date: 20070329
  Receipt Date: 20070313
  Transmission Date: 20070707
  Serious: Yes (Other)
  Sender: FDA-Public Use
  Company Number: 2007BM000023

PATIENT

DRUGS (5)
  1. SIROLIMUS (SIROLIMUS) [Suspect]
     Indication: IMMUNOSUPPRESSION
     Dosage: 6 MG; QD; PO
     Route: 048
  2. METHYLPREDNISOLONE [Suspect]
     Indication: IMMUNOSUPPRESSION
     Dosage: 500 MG; QD; IV
     Route: 042
  3. PREDNISOLONE [Suspect]
     Dosage: ; QD; PO
     Route: 048
  4. ORAPRED [Suspect]
  5. MYCOPHENOLATE MOFETIL [Concomitant]

REACTIONS (6)
  - COMPLICATIONS OF TRANSPLANT SURGERY [None]
  - HAEMODIALYSIS [None]
  - HAEMORRHAGE [None]
  - PROTEINURIA [None]
  - PULMONARY EMBOLISM [None]
  - TRANSPLANT FAILURE [None]
